FAERS Safety Report 18772926 (Version 1)
Quarter: 2021Q1

REPORT INFORMATION
  Report Type: Spontaneous
  Country: US (occurrence: US)
  Receive Date: 20210121
  Receipt Date: 20210121
  Transmission Date: 20210419
  Serious: No
  Sender: FDA-Public Use
  Company Number: None

PATIENT
  Age: 53 Year
  Sex: Female
  Weight: 72 kg

DRUGS (1)
  1. MODAFINIL 100MG TAB GENERIC FOR PROVIGIL [Suspect]
     Active Substance: MODAFINIL
     Indication: SOMNOLENCE
     Route: 048
     Dates: start: 20210109

REACTIONS (6)
  - Insomnia [None]
  - Feeling abnormal [None]
  - Fatigue [None]
  - Dry mouth [None]
  - Condition aggravated [None]
  - Drug ineffective [None]

NARRATIVE: CASE EVENT DATE: 20210112
